FAERS Safety Report 6993956-4 (Version None)
Quarter: 2010Q3

REPORT INFORMATION
  Report Type: 
  Country: None (occurrence: None)
  Receive Date: 20100917
  Receipt Date: 20100702
  Transmission Date: 20110219
  Serious: Yes (Other)
  Sender: FDA-Public Use
  Company Number: US-ASTRAZENECA-2007UW21490

PATIENT
  Age: 59 Year
  Sex: Female
  Weight: 93.4 kg

DRUGS (11)
  1. SEROQUEL [Suspect]
     Indication: ANXIETY
     Dosage: 100-800 MG
     Route: 048
     Dates: start: 19970601, end: 20061201
  2. SEROQUEL [Suspect]
     Indication: DEPRESSION
     Dosage: 100-800 MG
     Route: 048
     Dates: start: 19970601, end: 20061201
  3. SEROQUEL [Suspect]
     Indication: SCHIZOPHRENIA
     Dosage: 100-800 MG
     Route: 048
     Dates: start: 19970601, end: 20061201
  4. SEROQUEL [Suspect]
     Route: 048
     Dates: start: 20010807
  5. SEROQUEL [Suspect]
     Route: 048
     Dates: start: 20010807
  6. SEROQUEL [Suspect]
     Route: 048
     Dates: start: 20010807
  7. AMARYL [Concomitant]
     Dosage: 2 MG TO 4 MG DAILY
     Route: 048
     Dates: start: 19970918
  8. ACCUPRIL [Concomitant]
     Route: 048
     Dates: start: 20020725
  9. DEPAKOTE [Concomitant]
     Dates: start: 19980407
  10. ASPIRIN [Concomitant]
     Dosage: DAILY
  11. GEODON [Concomitant]
     Dosage: TWICE DAILY

REACTIONS (8)
  - ADVERSE DRUG REACTION [None]
  - BLOOD CHOLESTEROL INCREASED [None]
  - BLOOD TRIGLYCERIDES INCREASED [None]
  - DIABETES MELLITUS [None]
  - DIABETIC COMA [None]
  - HYPERLIPIDAEMIA [None]
  - OBESITY [None]
  - TYPE 2 DIABETES MELLITUS [None]
